FAERS Safety Report 4732555-1 (Version None)
Quarter: 2005Q3

REPORT INFORMATION
  Report Type: 
  Country: None (occurrence: None)
  Receive Date: 20050801
  Receipt Date: 20050721
  Transmission Date: 20060218
  Serious: Yes (Hospitalization)
  Sender: FDA-Public Use
  Company Number: APP200500358

PATIENT
  Age: 47 Year
  Sex: Male
  Weight: 90.8101 kg

DRUGS (10)
  1. FLUOROURACIL INJ [Suspect]
     Indication: BILIARY NEOPLASM
     Dosage: 375 MG/M2 (375 MG/M2, 1 IN 1 D), INTRAVENOUS
     Route: 042
     Dates: start: 20050620, end: 20050624
  2. LEUCOVORIN CALCIUM [Suspect]
     Indication: BILIARY NEOPLASM
     Dosage: 25 MG (25 MG, 1 IN 1 D), INTRAVENOUS
     Route: 042
  3. ENOXAPARIN (ENOXAPARIN) [Concomitant]
  4. DOCUSATE SODIUM (DOCUSATE SODIUM) [Concomitant]
  5. BISACODYL (BISACODYL) [Concomitant]
  6. ACETAMINOPHEN [Concomitant]
  7. ZOLPIDEM TARTRATE [Concomitant]
  8. LORAZEPAM [Concomitant]
  9. DOLASETRON MESILATE (DOLASETRON MESILATE) [Concomitant]
  10. DROPERIDOL [Concomitant]

REACTIONS (10)
  - APPETITE DISORDER [None]
  - ASTHENIA [None]
  - DEHYDRATION [None]
  - HAEMOGLOBIN DECREASED [None]
  - LIP ULCERATION [None]
  - MUCOSAL INFLAMMATION [None]
  - NAUSEA [None]
  - ORAL INTAKE REDUCED [None]
  - PAIN [None]
  - VOMITING [None]
